FAERS Safety Report 6386419-0 (Version None)
Quarter: 2009Q3

REPORT INFORMATION
  Report Type: 
  Country: None (occurrence: None)
  Receive Date: 20090930
  Receipt Date: 20090930
  Transmission Date: 20100115
  Serious: Yes (Other)
  Sender: FDA-Public Use
  Company Number: None

PATIENT
  Sex: Male
  Weight: 77.3 kg

DRUGS (1)
  1. METRONIDAZOLE [Suspect]
     Indication: ROSACEA
     Dosage: APPLY THIN FILM ON FACE TWICE DAILY
     Dates: start: 20090911, end: 20090920

REACTIONS (8)
  - ANXIETY [None]
  - DYSPNOEA [None]
  - INSOMNIA [None]
  - LACRIMATION INCREASED [None]
  - MIGRAINE [None]
  - MUSCLE TWITCHING [None]
  - PANIC ATTACK [None]
  - TREMOR [None]
